FAERS Safety Report 8150318-4 (Version None)
Quarter: 2012Q1

REPORT INFORMATION
  Report Type: 
  Country: None (occurrence: None)
  Receive Date: 20120220
  Receipt Date: 20120213
  Transmission Date: 20120608
  Serious: Yes (Other)
  Sender: FDA-Public Use
  Company Number: SE-BAYER-2012-008509

PATIENT
  Age: 23 Year
  Sex: Female

DRUGS (1)
  1. MIRENA [Suspect]
     Indication: CONTRACEPTION
     Dosage: 20 MCG/24HR, CONT
     Route: 015
     Dates: start: 20111201, end: 20120104

REACTIONS (5)
  - COMPLICATION OF DEVICE REMOVAL [None]
  - PAIN [None]
  - UTERINE HAEMORRHAGE [None]
  - PRODUCT SHAPE ISSUE [None]
  - OEDEMA PERIPHERAL [None]
